FAERS Safety Report 8014244-3 (Version None)
Quarter: 2011Q4

REPORT INFORMATION
  Report Type: 
  Country: None (occurrence: None)
  Receive Date: 20111229
  Receipt Date: 20111221
  Transmission Date: 20120403
  Serious: Yes (Disabling, Other)
  Sender: FDA-Public Use
  Company Number: US-GLAXOSMITHKLINE-A0959344A

PATIENT
  Age: 40 Year
  Sex: Female

DRUGS (3)
  1. APLENZIN [Concomitant]
     Indication: MAJOR DEPRESSION
     Route: 048
  2. WELLBUTRIN [Suspect]
     Indication: PRODUCT USED FOR UNKNOWN INDICATION
     Route: 048
  3. BUPROPION HYDROBROMIDE [Suspect]
     Indication: PRODUCT USED FOR UNKNOWN INDICATION
     Route: 048

REACTIONS (6)
  - SUICIDAL IDEATION [None]
  - MATERNAL EXPOSURE DURING PREGNANCY [None]
  - MAJOR DEPRESSION [None]
  - ABORTION SPONTANEOUS [None]
  - ANXIETY [None]
  - DISABILITY [None]
